FAERS Safety Report 23970809 (Version 4)
Quarter: 2025Q3

REPORT INFORMATION
  Report Type: Spontaneous
  Country: JP (occurrence: JP)
  Receive Date: 20240613
  Receipt Date: 20250803
  Transmission Date: 20251020
  Serious: Yes (Other)
  Sender: ALEXION PHARMACEUTICALS
  Company Number: 2024A134415

PATIENT
  Age: 85 Year
  Sex: Female
  Weight: 53 kg

DRUGS (23)
  1. LOKELMA [Suspect]
     Active Substance: SODIUM ZIRCONIUM CYCLOSILICATE
     Dosage: 5 GRAM, QD
     Dates: start: 20240409, end: 20240506
  2. CALCIUM POLYSTYRENE SULFONATE [Suspect]
     Active Substance: CALCIUM POLYSTYRENE SULFONATE
     Indication: Hyperkalaemia
     Dates: start: 20240116, end: 20240408
  3. Diart [Concomitant]
     Indication: Cardiac failure
     Dosage: 60 MILLIGRAM, QD
     Dates: start: 20220201
  4. AMLODIPINE BESYLATE [Concomitant]
     Active Substance: AMLODIPINE BESYLATE
     Indication: Hypertension
     Dosage: 5 MILLIGRAM, QD
     Dates: start: 20200303
  5. TOPIROXOSTAT [Concomitant]
     Active Substance: TOPIROXOSTAT
     Indication: Hyperuricaemia
     Dosage: 20 MILLIGRAM, QD
     Dates: start: 20190820
  6. TOPIROXOSTAT [Concomitant]
     Active Substance: TOPIROXOSTAT
     Dosage: 40 MILLIGRAM, QD
     Dates: start: 20220301
  7. AMLODIPINE [Concomitant]
     Active Substance: AMLODIPINE BESYLATE
     Indication: Hypertension
     Dosage: 2.5 MILLIGRAM, QD
     Dates: start: 20220405
  8. FUROSEMIDE [Concomitant]
     Active Substance: FUROSEMIDE
     Indication: Hypertension
     Dosage: 20 MILLIGRAM, QD
     Dates: start: 20220510, end: 20240507
  9. FUROSEMIDE [Concomitant]
     Active Substance: FUROSEMIDE
     Dosage: 40 MILLIGRAM, QD
     Dates: start: 20240508
  10. BISOPROLOL FUMARATE [Concomitant]
     Active Substance: BISOPROLOL FUMARATE
     Indication: Cardiac failure
     Dosage: 2.5 MILLIGRAM, QD
     Dates: start: 20190714
  11. BUFFERIN [Concomitant]
     Active Substance: ASPIRIN
     Indication: Aortic valve stenosis
     Dosage: 81 MILLIGRAM, QD
     Dates: start: 202201
  12. LANSOPRAZOLE [Concomitant]
     Active Substance: LANSOPRAZOLE
     Indication: Aortic valve stenosis
     Dosage: 15 MILLIGRAM, QD
     Dates: start: 202201
  13. ASPIRIN\LANSOPRAZOLE [Concomitant]
     Active Substance: ASPIRIN\LANSOPRAZOLE
     Indication: Aortic valve stenosis
  14. DARBEPOETIN ALFA [Concomitant]
     Active Substance: DARBEPOETIN ALFA
     Indication: Nephrogenic anaemia
     Dosage: 60 MILLIGRAM, QD
     Dates: start: 20220920
  15. ELOBIXIBAT [Concomitant]
     Active Substance: ELOBIXIBAT
     Indication: Constipation
     Dosage: 10 MILLIGRAM, QD
     Dates: start: 20240508, end: 20240520
  16. ELOBIXIBAT [Concomitant]
     Active Substance: ELOBIXIBAT
     Dosage: 5 MILLIGRAM, QD
     Dates: start: 20240521, end: 20240617
  17. ELOBIXIBAT [Concomitant]
     Active Substance: ELOBIXIBAT
     Dosage: 10 MILLIGRAM, QD
     Dates: start: 20240618
  18. ELOBIXIBAT [Concomitant]
     Active Substance: ELOBIXIBAT
     Dates: start: 20240508, end: 20240521
  19. ELOBIXIBAT [Concomitant]
     Active Substance: ELOBIXIBAT
     Dates: start: 20240522, end: 20240617
  20. AMLODIPINE [Concomitant]
     Active Substance: AMLODIPINE BESYLATE
     Indication: Hypertension
     Dates: start: 20200303
  21. BUFFERIN [Concomitant]
     Active Substance: ASPIRIN
     Indication: Aortic valve stenosis
     Dates: start: 202201
  22. LANSOPRAZOLE [Concomitant]
     Active Substance: LANSOPRAZOLE
     Indication: Aortic valve stenosis
     Dates: start: 202201
  23. DARBEPOETIN ALFA [Concomitant]
     Active Substance: DARBEPOETIN ALFA
     Indication: Nephrogenic anaemia
     Dates: start: 20220920

REACTIONS (2)
  - Cardiac failure congestive [Recovering/Resolving]
  - Constipation [Unknown]

NARRATIVE: CASE EVENT DATE: 20240507
